FAERS Safety Report 7272681-9 (Version None)
Quarter: 2011Q1

REPORT INFORMATION
  Report Type: 
  Country: None (occurrence: None)
  Receive Date: 20110203
  Receipt Date: 20110119
  Transmission Date: 20110831
  Serious: Yes (Other)
  Sender: FDA-Public Use
  Company Number: GB-CELGENEUS-167-20785-11012336

PATIENT
  Sex: Male

DRUGS (3)
  1. MELPHALAN [Concomitant]
     Route: 065
  2. THALIDOMIDE [Suspect]
     Indication: MULTIPLE MYELOMA
     Route: 048
     Dates: start: 20100601, end: 20101101
  3. PREDNISONE [Concomitant]
     Route: 065

REACTIONS (1)
  - CARDIAC DISORDER [None]
